FAERS Safety Report 9524309 (Version 1)
Quarter: 2013Q1

REPORT INFORMATION
  Report Type: Spontaneous
  Country: US (occurrence: None)
  Receive Date: 20130305
  Receipt Date: 20130305
  Transmission Date: 20140127
  Serious: Yes (Other)
  Sender: FDA-Public Use
  Company Number: 163-21880-12031452

PATIENT
  Age: 81 Year
  Sex: Female

DRUGS (17)
  1. REVLIMID [Suspect]
     Indication: PLASMA CELL MYELOMA
     Dosage: 5 MG, DAILY X 21 DAYS, PO
     Route: 048
     Dates: start: 20120124, end: 20120305
  2. CLINDAMYCIN HCL (CLINDAMYCIN HYDROCHLORIDE) (UNKNOWN) [Concomitant]
  3. COLACE (DOCUSATE SODIUM) (UNKNOWN) [Concomitant]
  4. ADVIL (IBUPROFEN) (UNKNOWN) [Concomitant]
  5. BIOTIN (BIOTIN) (UNKNOWN) [Concomitant]
  6. CARVEDILOL (CARVEILOL) (UNKNOWN) [Concomitant]
  7. DILAUDID (HYDROMORPHONE HYDROCHLORIDE) (UNKNOWN) [Concomitant]
  8. HYDROCHLOROTHIAZIDE (HYDROCHLOROTHIAZIDE) (25 MILLIGRAM, UNKNOWN)?? [Concomitant]
  9. METFORMIN HCL (METFORMIN HYDROCHLORIDE) (UNKNOWN) [Concomitant]
  10. PEPCID OTC (FAMOTIDINE) (UNKNOWN) [Concomitant]
  11. MORPHINE SULFATE (MORPHINE SULFATE) INJECTION [Concomitant]
  12. FENTANYL (FENTANYL) (POULTICE OR PATCH) [Concomitant]
  13. LIDODERM (LIDOCAINE) (POULTICE OR PATCH) [Concomitant]
  14. CLCLAMYACIN (TROLEANDOMYCIN) (UNKNOWN) [Concomitant]
  15. ZOMETA (ZOLEDRONIC ACID) (UNKNOWN) [Concomitant]
  16. SPINAL BLOCK (OTHER THERAPEUTIC PRODUCTS) (UNKNOWN) [Concomitant]
  17. MICRO-K (POTASIUM CHLORIDE) (UNKNOWN) [Concomitant]

REACTIONS (1)
  - Pancytopenia [None]
